FAERS Safety Report 6203198-8 (Version None)
Quarter: 2009Q2

REPORT INFORMATION
  Report Type: 
  Country: None (occurrence: None)
  Receive Date: 20090527
  Receipt Date: 20090523
  Transmission Date: 20091009
  Serious: Yes (Death, Life-Threatening)
  Sender: FDA-Public Use
  Company Number: NL-ASTRAZENECA-2009AC00622

PATIENT
  Age: 43 Year
  Sex: Female

DRUGS (6)
  1. SYMBICORT [Suspect]
     Dosage: 400/12 ONCE DAILY
     Route: 055
     Dates: end: 20081201
  2. SYMBICORT [Suspect]
     Dosage: 400/12 ONCE DAILY
     Route: 055
     Dates: start: 20081201
  3. FORADIL [Suspect]
     Route: 055
  4. DEPAKENE [Concomitant]
     Indication: EPILEPSY
  5. PREDNISON [Concomitant]
  6. ZOLOFT [Concomitant]

REACTIONS (1)
  - BRAIN DEATH [None]
